FAERS Safety Report 9495413 (Version 1)
Quarter: 2013Q3

REPORT INFORMATION
  Report Type: Spontaneous
  Country: US (occurrence: US)
  Receive Date: 20130903
  Receipt Date: 20130903
  Transmission Date: 20140515
  Serious: No
  Sender: FDA-Public Use
  Company Number: US-ASTRAZENECA-2013SE60494

PATIENT
  Age: 81 Year
  Sex: Female
  Weight: 61.2 kg

DRUGS (12)
  1. NEXIUM [Suspect]
     Indication: DYSPEPSIA
     Dosage: DAILY
     Route: 048
     Dates: start: 20100205, end: 201005
  2. PRILOSEC OTC [Suspect]
     Indication: DYSPEPSIA
     Route: 048
     Dates: start: 1997
  3. PRILOSEC OTC [Suspect]
     Indication: ULCER
     Route: 048
     Dates: start: 1997
  4. PRILOSEC OTC [Suspect]
     Indication: DYSPEPSIA
     Route: 048
  5. PRILOSEC OTC [Suspect]
     Indication: ULCER
     Route: 048
  6. CRESTOR [Suspect]
     Indication: BLOOD CHOLESTEROL INCREASED
     Route: 048
     Dates: start: 2006
  7. CLOPIDOGREL [Concomitant]
     Indication: STENT PLACEMENT
  8. ASPIRIN [Concomitant]
  9. LEVOTHYROXINE [Concomitant]
     Indication: HYPOTHYROIDISM
  10. EVISTA [Concomitant]
     Indication: OSTEOPOROSIS
  11. BENICAR/HCT [Concomitant]
     Indication: BLOOD PRESSURE
  12. METOPROLOL TARTATE [Concomitant]
     Indication: BLOOD PRESSURE

REACTIONS (2)
  - Hypertension [Unknown]
  - Gastric ulcer [Unknown]
